FAERS Safety Report 20469014 (Version 1)
Quarter: 2022Q1

REPORT INFORMATION
  Report Type: Spontaneous
  Country: JP (occurrence: JP)
  Receive Date: 20220214
  Receipt Date: 20220214
  Transmission Date: 20220423
  Serious: Yes (Hospitalization, Other)
  Sender: FDA-Public Use
  Company Number: JP-GSKNCCC-Case-01418310_AE-54681

PATIENT
  Age: 70 Year
  Sex: Male

DRUGS (1)
  1. SOTROVIMAB [Suspect]
     Active Substance: SOTROVIMAB
     Dosage: 500 MG/100 ML/30 MIN
     Dates: start: 20220207, end: 20220207

REACTIONS (3)
  - Abdominal pain upper [Unknown]
  - Diabetes mellitus [Unknown]
  - Liver disorder [Unknown]
